FAERS Safety Report 16088679 (Version 1)
Quarter: 2019Q1

REPORT INFORMATION
  Report Type: Spontaneous
  Country: US (occurrence: US)
  Receive Date: 20190319
  Receipt Date: 20190319
  Transmission Date: 20190418
  Serious: No
  Sender: FDA-Public Use
  Company Number: US-PFIZER INC-2019116635

PATIENT
  Age: 73 Year
  Sex: Female
  Weight: 99.79 kg

DRUGS (1)
  1. LYRICA [Suspect]
     Active Substance: PREGABALIN
     Indication: PERIPHERAL NERVE INJURY
     Dosage: 25 MG, 1X/DAY
     Route: 048
     Dates: start: 20190308

REACTIONS (3)
  - Drug hypersensitivity [Recovering/Resolving]
  - Urticaria [Unknown]
  - Pruritus [Unknown]
